FAERS Safety Report 15776391 (Version 1)
Quarter: 2018Q4

REPORT INFORMATION
  Report Type: Spontaneous
  Country: US (occurrence: US)
  Receive Date: 20181228
  Receipt Date: 20181228
  Transmission Date: 20190205
  Serious: Yes (Hospitalization)
  Sender: FDA-Public Use
  Company Number: None

PATIENT
  Age: 28 Year
  Sex: Female
  Weight: 54 kg

DRUGS (6)
  1. AMBIEN [Suspect]
     Active Substance: ZOLPIDEM TARTRATE
     Indication: DISABILITY
  2. KEPPRA [Concomitant]
     Active Substance: LEVETIRACETAM
  3. VIT C/D [Concomitant]
  4. CYMBALTA [Concomitant]
     Active Substance: DULOXETINE HYDROCHLORIDE
  5. KRATOM [Concomitant]
     Active Substance: MITRAGYNINE\HERBALS
  6. FISH OIL [Concomitant]
     Active Substance: FISH OIL

REACTIONS (2)
  - Loss of consciousness [None]
  - Hallucination [None]

NARRATIVE: CASE EVENT DATE: 20150620
